FAERS Safety Report 21452968 (Version 2)
Quarter: 2022Q4

REPORT INFORMATION
  Report Type: Spontaneous
  Country: RS (occurrence: None)
  Receive Date: 20221013
  Receipt Date: 20221019
  Transmission Date: 20230113
  Serious: No
  Sender: FDA-Public Use
  Company Number: RS-ROCHE-3194496

PATIENT

DRUGS (34)
  1. ACTEMRA [Suspect]
     Active Substance: TOCILIZUMAB
     Indication: COVID-19
     Route: 065
     Dates: start: 20210913, end: 202207
  2. ACTEMRA [Suspect]
     Active Substance: TOCILIZUMAB
     Indication: Gallbladder operation
  3. UNSPECIFIED INGREDIENT [Concomitant]
     Active Substance: UNSPECIFIED INGREDIENT
     Dates: start: 201703
  4. UNSPECIFIED INGREDIENT [Concomitant]
     Active Substance: UNSPECIFIED INGREDIENT
     Dates: start: 201709
  5. UNSPECIFIED INGREDIENT [Concomitant]
     Active Substance: UNSPECIFIED INGREDIENT
     Dates: start: 201802
  6. UNSPECIFIED INGREDIENT [Concomitant]
     Active Substance: UNSPECIFIED INGREDIENT
     Dates: start: 201806
  7. UNSPECIFIED INGREDIENT [Concomitant]
     Active Substance: UNSPECIFIED INGREDIENT
     Dates: start: 201912
  8. UNSPECIFIED INGREDIENT [Concomitant]
     Active Substance: UNSPECIFIED INGREDIENT
     Dates: start: 202001
  9. UNSPECIFIED INGREDIENT [Concomitant]
     Active Substance: UNSPECIFIED INGREDIENT
     Dates: start: 202007
  10. METHOTREXATE [Concomitant]
     Active Substance: METHOTREXATE
     Route: 048
     Dates: start: 201703
  11. METHOTREXATE [Concomitant]
     Active Substance: METHOTREXATE
     Route: 048
     Dates: start: 201709
  12. METHOTREXATE [Concomitant]
     Active Substance: METHOTREXATE
     Route: 048
     Dates: start: 201802
  13. METHOTREXATE [Concomitant]
     Active Substance: METHOTREXATE
     Route: 048
     Dates: start: 201806
  14. METHOTREXATE [Concomitant]
     Active Substance: METHOTREXATE
     Route: 048
     Dates: start: 202001
  15. METHOTREXATE [Concomitant]
     Active Substance: METHOTREXATE
     Route: 048
     Dates: start: 202007
  16. FOLAN TABLET [Concomitant]
     Dates: start: 201703
  17. FOLAN TABLET [Concomitant]
     Dates: start: 201709
  18. FOLAN TABLET [Concomitant]
     Dates: start: 201802
  19. FOLAN TABLET [Concomitant]
     Dates: start: 202001
  20. PPI (UNK INGREDIENTS) [Concomitant]
     Dates: start: 201802
  21. PPI (UNK INGREDIENTS) [Concomitant]
     Dates: start: 201806
  22. PPI (UNK INGREDIENTS) [Concomitant]
     Dates: start: 202001
  23. PPI (UNK INGREDIENTS) [Concomitant]
     Dates: start: 202007
  24. SULFASALAZINE [Concomitant]
     Active Substance: SULFASALAZINE
     Route: 048
     Dates: start: 201802
  25. SULFASALAZINE [Concomitant]
     Active Substance: SULFASALAZINE
     Route: 048
     Dates: start: 201806
  26. SULFASALAZINE [Concomitant]
     Active Substance: SULFASALAZINE
     Route: 048
     Dates: start: 202001
  27. SULFASALAZINE [Concomitant]
     Active Substance: SULFASALAZINE
     Dosage: 500 MG TBL 3X2
     Route: 048
     Dates: start: 202007
  28. ALVODRONIC [Concomitant]
     Route: 048
     Dates: start: 201911
  29. ALVODRONIC [Concomitant]
     Route: 048
     Dates: start: 202001
  30. ALVODRONIC [Concomitant]
     Route: 048
     Dates: start: 202007
  31. ALFACALCIDOL [Concomitant]
     Active Substance: ALFACALCIDOL
     Dosage: 1 MCG,
     Route: 048
  32. ALFACALCIDOL [Concomitant]
     Active Substance: ALFACALCIDOL
     Dosage: 1 MCG TBL 1X1,
     Route: 048
     Dates: start: 202001
  33. ALFACALCIDOL [Concomitant]
     Active Substance: ALFACALCIDOL
     Dosage: 1 MCG TBL 1X1
     Dates: start: 202007
  34. TOCILIZUMAB [Concomitant]
     Active Substance: TOCILIZUMAB
     Dosage: AMP 8 MG/KG BW
     Dates: start: 20200213

REACTIONS (1)
  - Disease progression [Unknown]
